FAERS Safety Report 25118595 (Version 1)
Quarter: 2025Q1

REPORT INFORMATION
  Report Type: Spontaneous
  Country: US (occurrence: US)
  Receive Date: 20250325
  Receipt Date: 20250325
  Transmission Date: 20250409
  Serious: No
  Sender: AMGEN
  Company Number: US-AMGEN-USASP2025056591

PATIENT

DRUGS (2)
  1. KRYSTEXXA [Suspect]
     Active Substance: PEGLOTICASE
     Indication: Leukaemia
     Route: 065
  2. KRYSTEXXA [Suspect]
     Active Substance: PEGLOTICASE
     Indication: Off label use

REACTIONS (2)
  - Hyperuricaemia [Unknown]
  - Off label use [Unknown]
